FAERS Safety Report 10523032 (Version 2)
Quarter: 2014Q4

REPORT INFORMATION
  Report Type: Spontaneous
  Country: US (occurrence: US)
  Receive Date: 20141016
  Receipt Date: 20141024
  Transmission Date: 20150528
  Serious: No
  Sender: FDA-Public Use
  Company Number: US-PFIZER INC-2014280502

PATIENT
  Age: 55 Year
  Sex: Female
  Weight: 43.54 kg

DRUGS (3)
  1. LYRICA [Suspect]
     Active Substance: PREGABALIN
     Indication: NERVOUS SYSTEM DISORDER
     Dosage: 50 MG, 2X/DAY
     Route: 048
     Dates: start: 20141007
  2. XANAX [Suspect]
     Active Substance: ALPRAZOLAM
     Indication: NERVOUS SYSTEM DISORDER
     Dosage: 0.025 MG, 1X/DAY
     Dates: start: 20141007
  3. XANAX [Suspect]
     Active Substance: ALPRAZOLAM
     Indication: ANXIETY

REACTIONS (4)
  - Injury [Recovered/Resolved]
  - Circumstance or information capable of leading to medication error [Unknown]
  - Somnambulism [Unknown]
  - Increased appetite [Unknown]

NARRATIVE: CASE EVENT DATE: 20141007
